FAERS Safety Report 21446543 (Version 3)
Quarter: 2023Q1

REPORT INFORMATION
  Report Type: Report from Study
  Country: US (occurrence: US)
  Receive Date: 20221012
  Receipt Date: 20230116
  Transmission Date: 20230417
  Serious: Yes (Hospitalization)
  Sender: FDA-Public Use
  Company Number: US-BIOVITRUM-2022US11535

PATIENT
  Age: 2 Year
  Sex: Male

DRUGS (2)
  1. KINERET [Suspect]
     Active Substance: ANAKINRA
     Indication: Still^s disease
     Dates: start: 20220311
  2. KINERET [Suspect]
     Active Substance: ANAKINRA
     Dosage: 100M
     Dates: start: 20220311

REACTIONS (6)
  - Eye infection [Unknown]
  - Gastroenteritis viral [Unknown]
  - COVID-19 [Unknown]
  - Inflammation [Unknown]
  - Infection [Unknown]
  - Off label use [Unknown]

NARRATIVE: CASE EVENT DATE: 20220311
